FAERS Safety Report 16114948 (Version 1)
Quarter: 2019Q1

REPORT INFORMATION
  Report Type: Spontaneous
  Country: FR (occurrence: FR)
  Receive Date: 20190325
  Receipt Date: 20190325
  Transmission Date: 20190418
  Serious: Yes (Other)
  Sender: FDA-Public Use
  Company Number: FR-ASCEND THERAPEUTICS-2064537

PATIENT
  Age: 58 Year
  Sex: Female

DRUGS (4)
  1. PROVAMES (ESTRADIOL) [Suspect]
     Active Substance: ESTRADIOL
     Route: 048
     Dates: start: 2000, end: 2010
  2. ESTROGEL [Suspect]
     Active Substance: ESTRADIOL
     Indication: HORMONE REPLACEMENT THERAPY
     Route: 003
     Dates: start: 2010, end: 20181016
  3. DIANE (ETHINYLESTRADIOL/CYPROTERONE ACETATE) [Suspect]
     Active Substance: CYPROTERONE ACETATE\ETHINYL ESTRADIOL
     Route: 048
     Dates: start: 1990, end: 2000
  4. ANDROCUR (CYPROTERONE ACETATE) [Suspect]
     Active Substance: CYPROTERONE ACETATE
     Route: 048
     Dates: start: 2000, end: 201809

REACTIONS (1)
  - Meningioma [Not Recovered/Not Resolved]

NARRATIVE: CASE EVENT DATE: 201809
